FAERS Safety Report 16228972 (Version 1)
Quarter: 2019Q2

REPORT INFORMATION
  Report Type: Spontaneous
  Country: US (occurrence: US)
  Receive Date: 20190423
  Receipt Date: 20190423
  Transmission Date: 20190711
  Serious: No
  Sender: FDA-Public Use
  Company Number: US-BAUSCH-BL-2018-008081

PATIENT
  Age: 64 Year
  Sex: Female

DRUGS (1)
  1. ARESTIN [Suspect]
     Active Substance: MINOCYCLINE HYDROCHLORIDE
     Indication: PRODUCT USED FOR UNKNOWN INDICATION
     Dosage: ARESTIN WAS PLACED IN THE FOLLOWING TEETH: 2, 3, 13, 14, 15, 18, 19, 20, 29, 30, AND 31
     Route: 065
     Dates: start: 20180308, end: 20180308

REACTIONS (1)
  - Glossitis [Unknown]

NARRATIVE: CASE EVENT DATE: 2018
